FAERS Safety Report 9449265 (Version 1)
Quarter: 2013Q3

REPORT INFORMATION
  Report Type: Spontaneous
  Country: US (occurrence: US)
  Receive Date: 20130808
  Receipt Date: 20130808
  Transmission Date: 20140515
  Serious: Yes (Life-Threatening)
  Sender: FDA-Public Use
  Company Number: ALCN2013US004022

PATIENT
  Age: 65 Year
  Sex: Female
  Weight: 54.42 kg

DRUGS (3)
  1. SIMBRINZA [Suspect]
     Dosage: 1 GTT, BID
     Route: 047
     Dates: start: 20130710, end: 20130713
  2. AZOPT [Concomitant]
     Dosage: UNK
     Dates: start: 20110511
  3. LUMIGAN [Concomitant]
     Indication: OPEN ANGLE GLAUCOMA
     Dosage: 1 GTT, UNK
     Route: 047
     Dates: start: 20061207

REACTIONS (1)
  - Suicidal ideation [Recovered/Resolved]
